FAERS Safety Report 21867099 (Version 2)
Quarter: 2023Q1

REPORT INFORMATION
  Report Type: Spontaneous
  Country: GB (occurrence: GB)
  Receive Date: 20230116
  Receipt Date: 20230211
  Transmission Date: 20230417
  Serious: Yes (Life-Threatening, Hospitalization, Other)
  Sender: FDA-Public Use
  Company Number: None

PATIENT
  Age: 29 Year
  Sex: Male

DRUGS (14)
  1. BRIVARACETAM [Suspect]
     Active Substance: BRIVARACETAM
     Indication: Partial seizures
     Dosage: 100 MILLIGRAM, 2X/DAY (BID);
  2. BRIVARACETAM [Suspect]
     Active Substance: BRIVARACETAM
     Indication: Temporal lobe epilepsy
  3. CLOBAZAM [Suspect]
     Active Substance: CLOBAZAM
     Indication: Temporal lobe epilepsy
     Dosage: 10 MG IN AM, 20 MG IN PM
     Dates: end: 20200822
  4. CLOBAZAM [Suspect]
     Active Substance: CLOBAZAM
     Indication: Partial seizures
     Dosage: DOSE UNKNOWN
     Dates: start: 20200823, end: 20200823
  5. FYCOMPA [Suspect]
     Active Substance: PERAMPANEL
     Indication: Partial seizures
     Dosage: 2 MILLIGRAM, ONCE DAILY (QD)
     Dates: start: 20200128, end: 202005
  6. FYCOMPA [Suspect]
     Active Substance: PERAMPANEL
     Indication: Temporal lobe epilepsy
     Dosage: 4 MILLIGRAM, ONCE DAILY (QD)
     Dates: start: 202005, end: 202006
  7. FYCOMPA [Suspect]
     Active Substance: PERAMPANEL
     Indication: Epilepsy
     Dosage: 8 MILLIGRAM, ONCE DAILY (QD)
     Dates: start: 202006, end: 202007
  8. FYCOMPA [Suspect]
     Active Substance: PERAMPANEL
     Dosage: 6 MILLIGRAM, ONCE DAILY (QD)
     Dates: start: 202007, end: 20200822
  9. FYCOMPA [Suspect]
     Active Substance: PERAMPANEL
     Dosage: UNKNOWN DOSE
     Dates: start: 20200823, end: 20200823
  10. METHYLPREDNISOLONE [Suspect]
     Active Substance: METHYLPREDNISOLONE
     Indication: Autoimmune disorder
     Dosage: 500 MILLIGRAM, ONCE DAILY (QD)
     Route: 042
     Dates: start: 20200820, end: 202008
  11. PERAMPANEL [Suspect]
     Active Substance: PERAMPANEL
     Indication: Epilepsy
     Dosage: 6 MILLIGRAM
     Dates: start: 20200128, end: 20200823
  12. PREDNISOLONE [Concomitant]
     Active Substance: PREDNISOLONE
     Indication: Product used for unknown indication
     Dosage: UNK
  13. ESLICARBAZEPINE [Concomitant]
     Active Substance: ESLICARBAZEPINE
     Indication: Temporal lobe epilepsy
     Dosage: 400 MG IN AM, 800 MG IN PM
  14. ESLICARBAZEPINE [Concomitant]
     Active Substance: ESLICARBAZEPINE
     Indication: Partial seizures

REACTIONS (12)
  - Intentional overdose [Unknown]
  - Mental disorder [Recovering/Resolving]
  - Hallucination [Recovering/Resolving]
  - Suicidal ideation [Recovered/Resolved with Sequelae]
  - Suicide attempt [Recovered/Resolved]
  - Hallucination, auditory [Recovering/Resolving]
  - Psychotic disorder [Recovered/Resolved]
  - Anger [Recovered/Resolved]
  - Depressed level of consciousness [Recovered/Resolved]
  - Abnormal behaviour [Recovered/Resolved]
  - Memory impairment [Recovered/Resolved]
  - Somnolence [Recovering/Resolving]

NARRATIVE: CASE EVENT DATE: 20200501
